FAERS Safety Report 18285302 (Version 1)
Quarter: 2020Q3

REPORT INFORMATION
  Report Type: Spontaneous
  Country: US (occurrence: US)
  Receive Date: 20200918
  Receipt Date: 20200918
  Transmission Date: 20201103
  Serious: Yes (Disabling, Congenital Anomaly, Other)
  Sender: FDA-Public Use
  Company Number: US-TEVA-2020-US-1829081

PATIENT
  Sex: Female

DRUGS (2)
  1. TRAMADOL. [Suspect]
     Active Substance: TRAMADOL
     Route: 065
  2. TYLENOL [Suspect]
     Active Substance: ACETAMINOPHEN
     Route: 065

REACTIONS (6)
  - Cardiac disorder [Unknown]
  - Learning disability [Unknown]
  - Disability [Unknown]
  - Congenital anomaly [Unknown]
  - Drug dependence [Unknown]
  - Impaired work ability [Unknown]
